FAERS Safety Report 4299864-4 (Version None)
Quarter: 2004Q1

REPORT INFORMATION
  Report Type: 
  Country: None (occurrence: None)
  Receive Date: 20040219
  Receipt Date: 20040219
  Transmission Date: 20041129
  Serious: Yes (Death)
  Sender: FDA-Public Use
  Company Number: None

PATIENT
  Sex: Male
  Weight: 83.9154 kg

DRUGS (1)
  1. EPOGEN [Suspect]
     Indication: ANAEMIA
     Dosage: 40,000 IU SQ EVERY WEEK
     Dates: start: 20030430, end: 20030604

REACTIONS (3)
  - BACK PAIN [None]
  - PAIN IN EXTREMITY [None]
  - PULMONARY EMBOLISM [None]
